FAERS Safety Report 5562663-7 (Version None)
Quarter: 2007Q4

REPORT INFORMATION
  Report Type: 
  Country: None (occurrence: None)
  Receive Date: 20071217
  Receipt Date: 20071116
  Transmission Date: 20080405
  Serious: No
  Sender: FDA-Public Use
  Company Number: US-BAYER-200713212BWH

PATIENT
  Sex: Female
  Weight: 82 kg

DRUGS (3)
  1. CIPRO [Suspect]
     Indication: CYSTITIS
     Route: 048
  2. LEVOXYL [Concomitant]
     Indication: AUTOIMMUNE THYROIDITIS
     Route: 048
  3. LEVOXYL [Concomitant]
     Route: 048

REACTIONS (8)
  - ASTHENIA [None]
  - DIARRHOEA [None]
  - FEELING ABNORMAL [None]
  - HEART RATE DECREASED [None]
  - MOBILITY DECREASED [None]
  - SOMNOLENCE [None]
  - THYROID DISORDER [None]
  - UNEVALUABLE EVENT [None]
